FAERS Safety Report 9753805 (Version 2)
Quarter: 2015Q3

REPORT INFORMATION
  Report Type: Spontaneous
  Country: US (occurrence: US)
  Receive Date: 20131213
  Receipt Date: 20150805
  Transmission Date: 20151125
  Serious: No
  Sender: FDA-Public Use
  Company Number: US-GILEAD-2010-0027104

PATIENT
  Age: 52 Year
  Sex: Female
  Weight: 106.59 kg

DRUGS (18)
  1. TRILIPIX DR [Concomitant]
  2. LETAIRIS [Suspect]
     Active Substance: AMBRISENTAN
     Indication: PULMONARY ARTERIAL HYPERTENSION
     Route: 048
     Dates: start: 20091211
  3. VITAMIN D 400 [Concomitant]
  4. AMOXICILLIN. [Concomitant]
     Active Substance: AMOXICILLIN
  5. ASA LO-DOSE [Concomitant]
  6. FISH OIL [Concomitant]
     Active Substance: FISH OIL
  7. TETRACYCLIN [Concomitant]
  8. LISINOPRIL. [Concomitant]
     Active Substance: LISINOPRIL
  9. FUROSEMIDE. [Concomitant]
     Active Substance: FUROSEMIDE
  10. POTASSIUM CHLORIDE. [Concomitant]
     Active Substance: POTASSIUM CHLORIDE
  11. GLIPIZIDE. [Concomitant]
     Active Substance: GLIPIZIDE
  12. MULTIVITAMIN [Concomitant]
     Active Substance: VITAMINS
  13. LOPID [Concomitant]
     Active Substance: GEMFIBROZIL
  14. LIPITOR [Concomitant]
     Active Substance: ATORVASTATIN CALCIUM
  15. LOVASTATIN. [Concomitant]
     Active Substance: LOVASTATIN
  16. METFORMIN [Concomitant]
     Active Substance: METFORMIN HYDROCHLORIDE
  17. JANUVIA [Concomitant]
     Active Substance: SITAGLIPTIN PHOSPHATE
  18. IBUPROFEN. [Concomitant]
     Active Substance: IBUPROFEN

REACTIONS (1)
  - Red blood cell count decreased [Unknown]
